FAERS Safety Report 8114701-5 (Version None)
Quarter: 2012Q1

REPORT INFORMATION
  Report Type: 
  Country: None (occurrence: None)
  Receive Date: 20120206
  Receipt Date: 20120131
  Transmission Date: 20120608
  Serious: Yes (Hospitalization, Congenital Anomaly, Other)
  Sender: FDA-Public Use
  Company Number: US-PFIZER INC-2011158600

PATIENT
  Sex: Male
  Weight: 2.17 kg

DRUGS (1)
  1. EFFEXOR [Suspect]
     Dosage: 37.5 MG, UNK
     Route: 064
     Dates: start: 19990507

REACTIONS (33)
  - HYPOPLASTIC LEFT HEART SYNDROME [None]
  - VIITH NERVE PARALYSIS [None]
  - CARDIOMEGALY [None]
  - MICROCEPHALY [None]
  - VENTRICULAR SEPTAL DEFECT [None]
  - PULMONARY ARTERY ATRESIA [None]
  - HYPERBILIRUBINAEMIA NEONATAL [None]
  - PECTUS EXCAVATUM [None]
  - EAR MALFORMATION [None]
  - MITRAL VALVE ATRESIA [None]
  - DEAFNESS NEUROSENSORY [None]
  - IIIRD NERVE PARALYSIS [None]
  - HEMIVERTEBRA [None]
  - PATENT DUCTUS ARTERIOSUS [None]
  - PYELOCALIECTASIS [None]
  - EAR DISORDER [None]
  - RESPIRATORY DISTRESS [None]
  - DEAFNESS BILATERAL [None]
  - MICROTIA [None]
  - OTITIS MEDIA [None]
  - BELL'S PHENOMENON [None]
  - SPEECH DISORDER DEVELOPMENTAL [None]
  - MATERNAL EXPOSURE TIMING UNSPECIFIED [None]
  - TRICUSPID VALVE INCOMPETENCE [None]
  - PULMONARY VALVE STENOSIS [None]
  - CONGENITAL SCOLIOSIS [None]
  - VESICOURETERIC REFLUX [None]
  - DEXTROCARDIA [None]
  - UMBILICAL CORD ABNORMALITY [None]
  - MICROGENIA [None]
  - VELOPHARYNGEAL INCOMPETENCE [None]
  - DOUBLE OUTLET RIGHT VENTRICLE [None]
  - ATRIAL SEPTAL DEFECT [None]
